FAERS Safety Report 6379174-1 (Version None)
Quarter: 2009Q3

REPORT INFORMATION
  Report Type: 
  Country: None (occurrence: None)
  Receive Date: 20090921
  Receipt Date: 20090914
  Transmission Date: 20100115
  Serious: No
  Sender: FDA-Public Use
  Company Number: AE-2009-193

PATIENT
  Age: 50 Year
  Sex: Female

DRUGS (6)
  1. HYDROCHLOROTHIAZIDE [Suspect]
     Dosage: ORAL
     Route: 048
  2. QUETIAPINE FUMARATE [Suspect]
     Dosage: ORAL
     Route: 048
  3. OXYCODONE AND ACETAMINOPHEN [Suspect]
     Dosage: ORAL
     Route: 048
  4. DIAZEPAM [Suspect]
     Dosage: ORAL
     Route: 048
  5. VENLAFAXINE [Suspect]
     Dosage: ORAL
     Route: 048
  6. IBUPROFEN [Suspect]
     Dosage: ORAL
     Route: 048

REACTIONS (2)
  - CARDIAC ARREST [None]
  - RESPIRATORY ARREST [None]
